FAERS Safety Report 7803197-6 (Version None)
Quarter: 2011Q4

REPORT INFORMATION
  Report Type: 
  Country: None (occurrence: None)
  Receive Date: 20111007
  Receipt Date: 20111001
  Transmission Date: 20120403
  Serious: Yes (Death, Hospitalization, Other)
  Sender: FDA-Public Use
  Company Number: DE-CELGENEUS-062-50794-10122915

PATIENT
  Age: 75 Year
  Sex: Male
  Weight: 96 kg

DRUGS (6)
  1. SIMVASTATIN [Concomitant]
     Route: 065
  2. VIDAZA [Suspect]
     Route: 058
     Dates: start: 20101122, end: 20101129
  3. ASPIRIN [Concomitant]
     Route: 065
  4. BISOPROLOL [Concomitant]
     Route: 065
  5. VIDAZA [Suspect]
     Dosage: 75 MILLIGRAM/SQ. METER
     Route: 058
     Dates: start: 20101220, end: 20101226
  6. RAMIPRIL [Concomitant]
     Route: 065

REACTIONS (4)
  - MOUTH ULCERATION [None]
  - ANAL ULCER [None]
  - ACUTE MYELOID LEUKAEMIA [None]
  - TONGUE NECROSIS [None]
